FAERS Safety Report 10397254 (Version 1)
Quarter: 2014Q3

REPORT INFORMATION
  Report Type: Spontaneous
  Country: JP (occurrence: JP)
  Receive Date: 20140820
  Receipt Date: 20140820
  Transmission Date: 20150326
  Serious: No
  Sender: FDA-Public Use
  Company Number: PHHY2013JP161489

PATIENT
  Age: 78 Year
  Sex: Male

DRUGS (4)
  1. TASIGNA [Suspect]
     Active Substance: NILOTINIB
     Dosage: 300 MG, UNK
  2. GLIVEC [Suspect]
     Active Substance: IMATINIB MESYLATE
     Dosage: 600 MG, UNK
  3. DASATINIB [Suspect]
     Active Substance: DASATINIB
     Dosage: 20 MG, UNK
  4. TASIGNA [Suspect]
     Active Substance: NILOTINIB
     Indication: CHRONIC MYELOID LEUKAEMIA
     Dosage: 800 MG, DAILY

REACTIONS (3)
  - Pleural effusion [Unknown]
  - Hyperglycaemia [Unknown]
  - Gynaecomastia [Unknown]
